FAERS Safety Report 9388002 (Version 1)
Quarter: 2013Q3

REPORT INFORMATION
  Report Type: Spontaneous
  Country: GB (occurrence: None)
  Receive Date: 20130703
  Receipt Date: 20130703
  Transmission Date: 20140515
  Serious: Yes (Hospitalization)
  Sender: FDA-Public Use
  Company Number: COL_13897_2013

PATIENT
  Age: 68 Year
  Sex: Female
  Weight: 66 kg

DRUGS (3)
  1. CHLORHEXIDINE [Suspect]
     Indication: PARAINFLUENZAE VIRUS INFECTION
     Route: 061
     Dates: start: 20121130, end: 20121130
  2. PATENT BLUE [Suspect]
     Indication: BIOPSY LYMPH GLAND
     Route: 058
     Dates: start: 20121130, end: 20121130
  3. AMLODIPINE [Concomitant]

REACTIONS (1)
  - Anaphylactic reaction [None]
